FAERS Safety Report 14222067 (Version 2)
Quarter: 2018Q1

REPORT INFORMATION
  Report Type: Spontaneous
  Country: DE (occurrence: DE)
  Receive Date: 20171124
  Receipt Date: 20180111
  Transmission Date: 20180508
  Serious: Yes (Other)
  Sender: FDA-Public Use
  Company Number: DE-ABBVIE-17K-062-2173836-00

PATIENT
  Age: 20 Year
  Sex: Male
  Weight: 63 kg

DRUGS (2)
  1. HUMIRA [Suspect]
     Active Substance: ADALIMUMAB
     Indication: COLITIS ULCERATIVE
     Route: 058
     Dates: start: 20171123, end: 20171123
  2. HUMIRA [Suspect]
     Active Substance: ADALIMUMAB
     Route: 058
     Dates: start: 20171207

REACTIONS (14)
  - Adrenal insufficiency [Recovered/Resolved]
  - Blood bilirubin increased [Unknown]
  - Paraesthesia [Recovered/Resolved]
  - Gamma-glutamyltransferase increased [Unknown]
  - Circulatory collapse [Recovering/Resolving]
  - Headache [Recovered/Resolved]
  - Blood creatine phosphokinase increased [Recovered/Resolved]
  - Dizziness [Recovered/Resolved]
  - Dyspnoea [Recovered/Resolved]
  - Abdominal pain [Unknown]
  - High density lipoprotein increased [Unknown]
  - Gilbert^s syndrome [Not Recovered/Not Resolved]
  - Chest discomfort [Unknown]
  - Drug hypersensitivity [Unknown]

NARRATIVE: CASE EVENT DATE: 2017
